APPROVED DRUG PRODUCT: ACAMPROSATE CALCIUM
Active Ingredient: ACAMPROSATE CALCIUM
Strength: 333MG
Dosage Form/Route: TABLET, DELAYED RELEASE;ORAL
Application: A200142 | Product #001 | TE Code: AB
Applicant: MYLAN PHARMACEUTICALS INC
Approved: Mar 11, 2014 | RLD: No | RS: No | Type: RX